FAERS Safety Report 14272034 (Version 1)
Quarter: 2017Q4

REPORT INFORMATION
  Report Type: Spontaneous
  Country: IT (occurrence: IT)
  Receive Date: 20171212
  Receipt Date: 20171212
  Transmission Date: 20180321
  Serious: Yes (Hospitalization)
  Sender: FDA-Public Use
  Company Number: IT-AUROBINDO-AUR-APL-2017-44957

PATIENT
  Age: 33 Year
  Sex: Male

DRUGS (3)
  1. MIRTAZAPINA EG [Concomitant]
     Indication: PSYCHOTIC DISORDER
     Dosage: 50 MG, UNK
     Route: 048
  2. ALPRAZOLAM. [Suspect]
     Active Substance: ALPRAZOLAM
     Indication: PRODUCT USED FOR UNKNOWN INDICATION
     Dosage: 52 GTT, IN TOTAL
     Route: 048
  3. ALOPERIDOLO GALENICA SENESE [Concomitant]
     Indication: PSYCHOTIC DISORDER
     Dosage: 24 GTT, UNK
     Route: 048

REACTIONS (1)
  - Syncope [Recovering/Resolving]

NARRATIVE: CASE EVENT DATE: 20171116
